FAERS Safety Report 20170076 (Version 2)
Quarter: 2021Q4

REPORT INFORMATION
  Report Type: Spontaneous
  Country: CA (occurrence: CA)
  Receive Date: 20211210
  Receipt Date: 20211231
  Transmission Date: 20220304
  Serious: Yes (Other)
  Sender: FDA-Public Use
  Company Number: CA-SA-SAC20211209000092

PATIENT
  Sex: Female

DRUGS (42)
  1. TRIAMCINOLONE ACETONIDE [Suspect]
     Active Substance: TRIAMCINOLONE ACETONIDE
     Indication: Product used for unknown indication
     Dosage: UNK
  2. ACETAMINOPHEN [Suspect]
     Active Substance: ACETAMINOPHEN
     Indication: Product used for unknown indication
     Dosage: UNK
  3. ALPRAZOLAM [Suspect]
     Active Substance: ALPRAZOLAM
     Indication: Product used for unknown indication
     Dosage: UNK
  4. AMOXICILLIN TRIHYDRATE [Suspect]
     Active Substance: AMOXICILLIN
     Indication: Product used for unknown indication
     Dosage: UNK
  5. ATORVASTATIN CALCIUM [Suspect]
     Active Substance: ATORVASTATIN CALCIUM
     Indication: Product used for unknown indication
     Dosage: UNK
  6. AZITHROMYCIN [Suspect]
     Active Substance: AZITHROMYCIN
     Indication: Product used for unknown indication
     Dosage: UNK
  7. BETAMETHASONE DIPROPIONATE [Suspect]
     Active Substance: BETAMETHASONE DIPROPIONATE
     Indication: Product used for unknown indication
     Dosage: UNK
  8. BETAMETHASONE VALERATE [Suspect]
     Active Substance: BETAMETHASONE VALERATE
     Indication: Product used for unknown indication
     Dosage: UNK
  9. CLARITHROMYCIN [Suspect]
     Active Substance: CLARITHROMYCIN
     Indication: Product used for unknown indication
     Dosage: UNK
  10. BISACODYL [Suspect]
     Active Substance: BISACODYL
     Indication: Product used for unknown indication
     Dosage: UNK
  11. CALCIUM CARBONATE\CHOLECALCIFEROL [Suspect]
     Active Substance: CALCIUM CARBONATE\CHOLECALCIFEROL
     Indication: Product used for unknown indication
     Dosage: UNK
  12. CETIRIZINE HYDROCHLORIDE [Suspect]
     Active Substance: CETIRIZINE HYDROCHLORIDE
     Indication: Product used for unknown indication
     Dosage: UNK
  13. HYDROCHLOROTHIAZIDE [Suspect]
     Active Substance: HYDROCHLOROTHIAZIDE
     Indication: Product used for unknown indication
     Dosage: UNK
  14. DESONIDE [Suspect]
     Active Substance: DESONIDE
     Indication: Product used for unknown indication
     Dosage: UNK
  15. DIPHENHYDRAMINE HYDROCHLORIDE [Suspect]
     Active Substance: DIPHENHYDRAMINE HYDROCHLORIDE
     Indication: Product used for unknown indication
     Dosage: UNK
  16. BUDESONIDE [Suspect]
     Active Substance: BUDESONIDE
     Indication: Product used for unknown indication
     Dosage: UNK
  17. HYDROMORPHONE HYDROCHLORIDE [Suspect]
     Active Substance: HYDROMORPHONE HYDROCHLORIDE
     Indication: Product used for unknown indication
     Dosage: UNK
  18. GLYCERIN [Suspect]
     Active Substance: GLYCERIN
     Indication: Product used for unknown indication
     Dosage: UNK
  19. FLUTICASONE FUROATE [Suspect]
     Active Substance: FLUTICASONE FUROATE
     Indication: Product used for unknown indication
     Dosage: UNK
  20. METRONIDAZOLE [Suspect]
     Active Substance: METRONIDAZOLE
     Indication: Product used for unknown indication
     Dosage: UNK
  21. NICOTINE POLACRILEX [Suspect]
     Active Substance: NICOTINE
     Indication: Product used for unknown indication
     Dosage: UNK
  22. PANTOPRAZOLE SODIUM [Suspect]
     Active Substance: PANTOPRAZOLE SODIUM
     Indication: Product used for unknown indication
     Dosage: UNK
  23. MESALAMINE [Suspect]
     Active Substance: MESALAMINE
     Indication: Product used for unknown indication
     Dosage: UNK
  24. BUDESONIDE [Suspect]
     Active Substance: BUDESONIDE
     Indication: Product used for unknown indication
     Dosage: UNK
  25. CARBOXYMETHYLCELLULOSE SODIUM [Suspect]
     Active Substance: CARBOXYMETHYLCELLULOSE SODIUM
     Indication: Product used for unknown indication
     Dosage: UNK
  26. CHOLECALCIFEROL [Suspect]
     Active Substance: CHOLECALCIFEROL
     Indication: Product used for unknown indication
     Dosage: UNK
  27. PREGABALIN [Suspect]
     Active Substance: PREGABALIN
     Indication: Product used for unknown indication
     Dosage: UNK
  28. NICODERM CQ [Suspect]
     Active Substance: NICOTINE
     Indication: Product used for unknown indication
     Dosage: UNK
  29. MORPHINE SULFATE [Suspect]
     Active Substance: MORPHINE SULFATE
     Indication: Product used for unknown indication
     Dosage: UNK
  30. MUPIROCIN CALCIUM [Suspect]
     Active Substance: MUPIROCIN CALCIUM
     Indication: Product used for unknown indication
     Dosage: UNK
  31. NADOLOL [Suspect]
     Active Substance: NADOLOL
     Indication: Product used for unknown indication
     Dosage: UNK
  32. SODIUM BICARBONATE\SODIUM CHLORIDE [Suspect]
     Active Substance: SODIUM BICARBONATE\SODIUM CHLORIDE
     Indication: Product used for unknown indication
     Dosage: UNK
  33. ACETAMINOPHEN [Suspect]
     Active Substance: ACETAMINOPHEN
     Indication: Product used for unknown indication
     Dosage: UNK
  34. ATROPINE SULFATE\DIFENOXIN HYDROCHLORIDE [Suspect]
     Active Substance: ATROPINE SULFATE\DIFENOXIN HYDROCHLORIDE
     Indication: Product used for unknown indication
     Dosage: UNK
  35. ERTAPENEM SODIUM [Suspect]
     Active Substance: ERTAPENEM SODIUM
     Indication: Product used for unknown indication
     Dosage: UNK
  36. HUMIRA [Suspect]
     Active Substance: ADALIMUMAB
     Indication: Product used for unknown indication
     Dosage: UNK
  37. BACTRIM [Suspect]
     Active Substance: SULFAMETHOXAZOLE\TRIMETHOPRIM
     Indication: Product used for unknown indication
     Dosage: UNK
  38. GRAMICIDIN\NEOMYCIN SULFATE [Suspect]
     Active Substance: GRAMICIDIN\NEOMYCIN SULFATE
     Indication: Product used for unknown indication
     Dosage: UNK
  39. VALSARTAN [Concomitant]
     Active Substance: VALSARTAN
     Indication: Product used for unknown indication
     Dosage: UNK
  40. BIAXIN [Suspect]
     Active Substance: CLARITHROMYCIN
     Indication: Product used for unknown indication
     Dosage: UNK
  41. MORPHINE SULFATE [Suspect]
     Active Substance: MORPHINE SULFATE
     Indication: Product used for unknown indication
     Dosage: UNK
  42. NYSTATIN [Suspect]
     Active Substance: NYSTATIN

REACTIONS (2)
  - Macular degeneration [Unknown]
  - Drug ineffective [Unknown]
